FAERS Safety Report 9694645 (Version 1)
Quarter: 2013Q4

REPORT INFORMATION
  Report Type: Other
  Country: GB (occurrence: GB)
  Receive Date: 20131119
  Receipt Date: 20131119
  Transmission Date: 20140711
  Serious: Yes (Hospitalization)
  Sender: FDA-Public Use
  Company Number: GB-SUN PHARMACEUTICAL INDUSTRIES LTD-2013SUN05003

PATIENT
  Age: 45 Year
  Sex: Female
  Weight: 64.5 kg

DRUGS (4)
  1. CARBOPLATIN 10 MG/ML CONCENTRATE FOR SOLUTION FOR INFUSION [Suspect]
     Indication: BREAST CANCER
     Dosage: 760 MG, 3 WEEKS
     Route: 042
     Dates: start: 20120914
  2. DOCETAXEL [Suspect]
     Indication: BREAST CANCER
     Dosage: 130 MG, 3 WEEKS
     Route: 042
     Dates: start: 20120914
  3. HERCEPTIN [Suspect]
     Indication: BREAST CANCER
     Dosage: 5145 MG, 3 WEEKS
     Route: 042
     Dates: start: 20120914
  4. PIRITON [Concomitant]
     Dosage: UNK
     Dates: start: 20120922, end: 20120922

REACTIONS (1)
  - Neutropenic sepsis [Recovered/Resolved]
